FAERS Safety Report 4607116-5 (Version None)
Quarter: 2005Q1

REPORT INFORMATION
  Report Type: 
  Country: None (occurrence: None)
  Receive Date: 20050310
  Receipt Date: 20050302
  Transmission Date: 20050727
  Serious: Yes (Hospitalization)
  Sender: FDA-Public Use
  Company Number: 2005-00765

PATIENT
  Age: 61 Year
  Sex: Female
  Weight: 107 kg

DRUGS (7)
  1. PROBENECID/COLCHICINE [Suspect]
     Indication: GOUTY ARTHRITIS
     Dosage: SEE IMAGE
     Route: 048
     Dates: start: 19700101, end: 19720101
  2. PROBENECID/COLCHICINE [Suspect]
     Indication: GOUTY ARTHRITIS
     Dosage: SEE IMAGE
     Route: 048
     Dates: start: 19720101
  3. AVAPRO [Concomitant]
  4. MAGNESIUM (MAGNESIUM) [Concomitant]
  5. VITAMIN E [Concomitant]
  6. SOY SUPPLEMENT [Concomitant]
  7. VITAMIN B COMPLEX (THIAMINE HYDROCHLORIDE, RIBOFLAVIN, NICOTINAMIDE, C [Concomitant]

REACTIONS (6)
  - BACK PAIN [None]
  - FIBROMYALGIA [None]
  - GASTRIC ULCER [None]
  - GASTROINTESTINAL DISORDER [None]
  - INFLAMMATION [None]
  - STRESS [None]
